FAERS Safety Report 9306153 (Version 2)
Quarter: 2013Q2

REPORT INFORMATION
  Report Type: Report from Study
  Country: JP (occurrence: JP)
  Receive Date: 20130523
  Receipt Date: 20130625
  Transmission Date: 20140414
  Serious: Yes (Hospitalization)
  Sender: FDA-Public Use
  Company Number: JP-SANOFI-AVENTIS-2013SA050419

PATIENT
  Sex: Male
  Weight: 50 kg

DRUGS (12)
  1. INSULIN GLARGINE [Suspect]
     Indication: TYPE 2 DIABETES MELLITUS
     Dosage: DOSE:3 UNIT(S)
     Route: 058
     Dates: start: 20120315, end: 20120904
  2. SOLOSTAR [Suspect]
     Indication: DEVICE THERAPY
     Route: 058
     Dates: start: 20120315, end: 20120904
  3. NOVORAPID [Concomitant]
     Indication: TYPE 2 DIABETES MELLITUS
     Dosage: 5 UNITS BEFORE BREAKFAST AND 2 UNITS BEFORE LUNCH.
     Route: 058
     Dates: end: 20120902
  4. HUMALOG [Concomitant]
     Indication: TYPE 2 DIABETES MELLITUS
     Dosage: 5 U BEFORE BREAKFAST, 3 U BEFORE LUNCH AND 3 UNITS BEFORE DINNER.
     Route: 058
     Dates: start: 20120903
  5. BLOPRESS [Concomitant]
     Route: 048
  6. RENIVACE [Concomitant]
     Route: 048
  7. SORBITOL [Concomitant]
     Route: 048
  8. CETIRIZINE [Concomitant]
     Route: 048
  9. ALCADOL [Concomitant]
     Route: 048
  10. SODIUM BICARBONATE [Concomitant]
     Route: 048
  11. FEBURIC [Concomitant]
     Route: 048
  12. CALCIUM POLYSTYRENE SULFONATE [Concomitant]
     Route: 048

REACTIONS (1)
  - No adverse event [Unknown]
